FAERS Safety Report 24047238 (Version 1)
Quarter: 2024Q3

REPORT INFORMATION
  Report Type: Spontaneous
  Country: US (occurrence: None)
  Receive Date: 20240702
  Receipt Date: 20240702
  Transmission Date: 20241017
  Serious: No
  Sender: Public
  Company Number: None

PATIENT
  Age: 69 Year
  Sex: Male
  Weight: 114.3 kg

DRUGS (12)
  1. DIETARY SUPPLEMENT [Suspect]
     Active Substance: DIETARY SUPPLEMENT
     Indication: Joint swelling
     Dosage: 1 TABLET  DAILY ORAL
     Route: 048
     Dates: start: 20230830, end: 20240610
  2. DIETARY SUPPLEMENT [Suspect]
     Active Substance: DIETARY SUPPLEMENT
     Indication: Arthralgia
  3. MELOXICAM [Suspect]
     Active Substance: MELOXICAM
  4. AMOXICILLAN [Concomitant]
     Active Substance: AMOXICILLIN
  5. ATORVASTATIN [Concomitant]
     Active Substance: ATORVASTATIN
  6. CARVEDILOL [Concomitant]
     Active Substance: CARVEDILOL
  7. LISINOPRIL [Concomitant]
     Active Substance: LISINOPRIL
  8. FISH OIL [Concomitant]
     Active Substance: FISH OIL
  9. HERBALS\TURMERIC [Concomitant]
     Active Substance: HERBALS\TURMERIC
  10. OSTEO BI-FLEX TRIPLE STRENGTH [Concomitant]
  11. ASPIRIN [Concomitant]
     Active Substance: ASPIRIN
  12. MINERALS\VITAMINS [Concomitant]
     Active Substance: MINERALS\VITAMINS

REACTIONS (4)
  - Blood urine present [None]
  - Haematospermia [None]
  - Weight increased [None]
  - Pain [None]

NARRATIVE: CASE EVENT DATE: 20240610
